FAERS Safety Report 6036866-1 (Version None)
Quarter: 2009Q1

REPORT INFORMATION
  Report Type: 
  Country: None (occurrence: None)
  Receive Date: 20090114
  Receipt Date: 20090105
  Transmission Date: 20090719
  Serious: Yes (Other)
  Sender: FDA-Public Use
  Company Number: US-PFIZER INC-2007092144

PATIENT
  Sex: Male
  Weight: 113.38 kg

DRUGS (14)
  1. DILANTIN [Suspect]
  2. PHENYTOIN AND PHENYTOIN SODIUM [Suspect]
  3. ASCORBIC ACID [Concomitant]
     Dosage: 500 MG, 2X/DAY
  4. ACTOS [Concomitant]
     Dosage: 45 MG, 1X/DAY
  5. METFORMIN HYDROCHLORIDE [Concomitant]
     Dosage: UNK
  6. TRICOR [Concomitant]
     Dosage: UNK
  7. PREVACID [Concomitant]
     Dosage: UNK
  8. MOBIC [Concomitant]
     Dosage: 7.5 MG, 2X/DAY
  9. CARDIZEM [Concomitant]
     Indication: HYPERTENSION
     Dosage: UNK
  10. ZYRTEC [Concomitant]
     Dosage: UNK
  11. XYZAL [Concomitant]
     Dosage: UNK
  12. HYDROCODONE [Concomitant]
     Dosage: 500 MG, 2X/DAY
  13. NASONEX [Concomitant]
     Dosage: 1 SPRAY EACH NOSTRIL
  14. TEGRETOL [Concomitant]
     Dosage: UNK

REACTIONS (4)
  - DIABETES MELLITUS [None]
  - DISABILITY [None]
  - MOUTH INJURY [None]
  - SWOLLEN TONGUE [None]
